FAERS Safety Report 5874341-5 (Version None)
Quarter: 2008Q3

REPORT INFORMATION
  Report Type: 
  Country: None (occurrence: None)
  Receive Date: 20080908
  Receipt Date: 20080824
  Transmission Date: 20090109
  Serious: Yes (Other)
  Sender: FDA-Public Use
  Company Number: IL-GENENTECH-267221

PATIENT
  Sex: Female

DRUGS (7)
  1. MABTHERA [Suspect]
     Indication: B-CELL LYMPHOMA
     Dosage: UNK
     Dates: start: 20071001, end: 20080601
  2. CYCLOPHOSPHAMIDE [Concomitant]
     Indication: PROPHYLAXIS
     Dosage: UNK
     Dates: start: 20071001
  3. DOXORUBICIN HCL [Concomitant]
     Indication: PROPHYLAXIS
     Dosage: UNK
     Dates: start: 20071001
  4. PREDNISONE [Concomitant]
     Indication: PROPHYLAXIS
     Dosage: UNK
     Dates: start: 20071001
  5. VINCRISTINE [Concomitant]
     Indication: PROPHYLAXIS
     Dosage: UNK
     Dates: start: 20071001
  6. PEGFILGRASTIM [Concomitant]
     Indication: PROPHYLAXIS
  7. UNSPECIFIED DRUG [Concomitant]
     Indication: PREMEDICATION

REACTIONS (3)
  - BALANCE DISORDER [None]
  - CEREBELLAR ATROPHY [None]
  - PARANEOPLASTIC SYNDROME [None]
